FAERS Safety Report 23109993 (Version 1)
Quarter: 2023Q4

REPORT INFORMATION
  Report Type: Spontaneous
  Country: US (occurrence: US)
  Receive Date: 20231026
  Receipt Date: 20231026
  Transmission Date: 20240109
  Serious: Yes (Other)
  Sender: FDA-Public Use
  Company Number: US-MYLANLABS-202200762140

PATIENT
  Sex: Female

DRUGS (2)
  1. GABAPENTIN [Suspect]
     Active Substance: GABAPENTIN
     Indication: Product used for unknown indication
     Dosage: UNK
     Route: 065
     Dates: start: 20210201
  2. DULOXETINE [Concomitant]
     Active Substance: DULOXETINE
     Indication: Feeling of relaxation
     Dosage: UNK
     Route: 065
     Dates: start: 20210201

REACTIONS (9)
  - Paraparesis [Unknown]
  - Neuropathy peripheral [Unknown]
  - Feeling abnormal [Unknown]
  - Sleep disorder [Unknown]
  - Balance disorder [Unknown]
  - Eye pain [Unknown]
  - Paraesthesia ear [Unknown]
  - Headache [Unknown]
  - Off label use [Unknown]
